FAERS Safety Report 4685502-5 (Version None)
Quarter: 2005Q2

REPORT INFORMATION
  Report Type: 
  Country: None (occurrence: None)
  Receive Date: 20050608
  Receipt Date: 20050531
  Transmission Date: 20051028
  Serious: Yes (Death, Hospitalization)
  Sender: FDA-Public Use
  Company Number: FR-BRISTOL-MYERS SQUIBB COMPANY-12989760

PATIENT
  Age: 75 Year
  Sex: Female

DRUGS (7)
  1. COUMADIN [Suspect]
     Indication: EMBOLISM
     Dosage: 2MG TABLET; 3MG DAILY
     Route: 048
     Dates: end: 20050220
  2. COUMADIN [Suspect]
     Indication: PHLEBOTHROMBOSIS
     Dosage: 2MG TABLET; 3MG DAILY
     Route: 048
     Dates: end: 20050220
  3. PIASCLEDINE [Concomitant]
  4. ENALAPRIL MALEATE [Concomitant]
  5. DIFFU-K [Concomitant]
  6. ENALAPRIL MALEATE AND HYDROCHLOROTHIAZIDE [Concomitant]
  7. FRACTAL [Concomitant]

REACTIONS (2)
  - CEREBRAL HAEMATOMA [None]
  - DEPRESSED LEVEL OF CONSCIOUSNESS [None]
